FAERS Safety Report 12355519 (Version 1)
Quarter: 2016Q2

REPORT INFORMATION
  Report Type: Spontaneous
  Country: US (occurrence: US)
  Receive Date: 20160511
  Receipt Date: 20160511
  Transmission Date: 20160815
  Serious: Yes (Other)
  Sender: FDA-Public Use
  Company Number: ADR-2015-01320

PATIENT
  Age: 65 Year
  Sex: Female

DRUGS (8)
  1. COMPOUNDED BACLOFEN [Suspect]
     Active Substance: BACLOFEN
     Dosage: 428 MCG/DAY
     Route: 037
  2. FENTANYL. [Suspect]
     Active Substance: FENTANYL
     Dosage: 10.7 MCG/DAY
     Route: 037
  3. DETROL [Suspect]
     Active Substance: TOLTERODINE TARTRATE
  4. SYNTHROID [Suspect]
     Active Substance: LEVOTHYROXINE SODIUM
  5. WELLBUTRIN [Suspect]
     Active Substance: BUPROPION HYDROCHLORIDE
  6. SOMA [Suspect]
     Active Substance: CARISOPRODOL
  7. LIPITOR [Suspect]
     Active Substance: ATORVASTATIN CALCIUM
  8. LISINOPRIL. [Suspect]
     Active Substance: LISINOPRIL

REACTIONS (2)
  - Therapeutic response decreased [Unknown]
  - No therapeutic response [Unknown]

NARRATIVE: CASE EVENT DATE: 201505
